FAERS Safety Report 21469189 (Version 3)
Quarter: 2022Q4

REPORT INFORMATION
  Report Type: Report from Study
  Country: CN (occurrence: CN)
  Receive Date: 20221018
  Receipt Date: 20221207
  Transmission Date: 20230113
  Serious: Yes (Death)
  Sender: FDA-Public Use
  Company Number: CN-JNJFOC-20221020666

PATIENT
  Age: 58 Year
  Sex: Female
  Weight: 65 kg

DRUGS (4)
  1. DARATUMUMAB [Suspect]
     Active Substance: DARATUMUMAB
     Indication: Plasma cell myeloma
     Route: 041
     Dates: start: 20210827, end: 20211223
  2. DARATUMUMAB [Suspect]
     Active Substance: DARATUMUMAB
     Dosage: THE MEDICATION CYCLE WAS ONCE A MONTH AND THE FREQUENCY OF EACH MEDICATION WAS ONCE A DAY.
     Route: 041
     Dates: start: 20220124, end: 20220829
  3. CEFTRIAXONE SODIUM;TAZOBACTAM SODIUM [Concomitant]
     Indication: Pneumonia
     Dosage: 2G INTRAVENOUS INFUSION INTERVAL OF 12 HOURS
     Route: 042
     Dates: start: 20220803, end: 20220803
  4. OSELTAMIVIR PHOSPHATE [Concomitant]
     Active Substance: OSELTAMIVIR PHOSPHATE
     Indication: Pneumonia
     Route: 048
     Dates: start: 20220803, end: 20220803

REACTIONS (1)
  - Acute on chronic liver failure [Fatal]

NARRATIVE: CASE EVENT DATE: 20221001
